FAERS Safety Report 4621116-0 (Version None)
Quarter: 2005Q1

REPORT INFORMATION
  Report Type: 
  Country: None (occurrence: None)
  Receive Date: 20050328
  Receipt Date: 20050302
  Transmission Date: 20050727
  Serious: Yes (Hospitalization)
  Sender: FDA-Public Use
  Company Number: JP-MERCK-0503USA00862

PATIENT
  Age: 60 Year
  Sex: Male

DRUGS (3)
  1. PRIMAXIN [Suspect]
     Indication: ABSCESS
     Route: 042
  2. CEFAZOLIN SODIUM [Concomitant]
     Indication: INFECTION PROPHYLAXIS
     Route: 042
  3. FLOMOXEF SODIUM [Concomitant]
     Indication: POSTOPERATIVE INFECTION
     Route: 042

REACTIONS (4)
  - AORTIC RUPTURE [None]
  - ARTERIAL RUPTURE [None]
  - STAPHYLOCOCCAL INFECTION [None]
  - URETERIC RUPTURE [None]
